FAERS Safety Report 4707056-7 (Version None)
Quarter: 2005Q3

REPORT INFORMATION
  Report Type: 
  Country: None (occurrence: None)
  Receive Date: 20050701
  Receipt Date: 20050617
  Transmission Date: 20060218
  Serious: Yes (Hospitalization)
  Sender: FDA-Public Use
  Company Number: 2005JP001271

PATIENT
  Age: 56 Year
  Sex: Male

DRUGS (3)
  1. PROGRAF [Suspect]
     Indication: BONE MARROW TRANSPLANT
     Dosage: IV DRIP
     Route: 041
     Dates: start: 20040101
  2. METHYLPREDNISOLONE [Concomitant]
  3. MYCOPHENOLATE MOFETIL (MYCOPHENOLATE MFOETIL) [Concomitant]

REACTIONS (7)
  - ADENOVIRAL HAEMORRHAGIC CYSTITIS [None]
  - CYTOMEGALOVIRUS INFECTION [None]
  - ERYTHEMA [None]
  - GRAFT VERSUS HOST DISEASE [None]
  - RENAL IMPAIRMENT [None]
  - THERAPY NON-RESPONDER [None]
  - THROMBOTIC MICROANGIOPATHY [None]
